FAERS Safety Report 8500442 (Version 2)
Quarter: 2014Q3

REPORT INFORMATION
  Report Type: Spontaneous
  Country: FR (occurrence: None)
  Receive Date: 20120402
  Receipt Date: 20140918
  Transmission Date: 20150326
  Serious: Yes (Hospitalization)
  Sender: FDA-Public Use
  Company Number: 7114930

PATIENT
  Age: 62 Year
  Sex: Female

DRUGS (3)
  1. LEVOTHYROXINE SODIUM. [Suspect]
     Active Substance: LEVOTHYROXINE SODIUM
     Indication: HYPOTHYROIDISM
     Dosage: ORAL
     Route: 048
     Dates: start: 20120101, end: 20120111
  2. NEBIVOLOL (NEBIVOLOL) (NEBIVOLOL) [Concomitant]
     Active Substance: NEBIVOLOL
  3. IRBESARTAN. [Concomitant]
     Active Substance: IRBESARTAN

REACTIONS (15)
  - Rash maculo-papular [None]
  - Breast disorder [None]
  - Toxic skin eruption [None]
  - Thermal burn [None]
  - Myalgia [None]
  - Pruritus [None]
  - Autoimmune thyroiditis [None]
  - Asthenia [None]
  - Muscle spasms [None]
  - Rash [None]
  - Arthralgia [None]
  - Weight increased [None]
  - Skin plaque [None]
  - Product substitution issue [None]
  - Reaction to drug excipients [None]

NARRATIVE: CASE EVENT DATE: 20120111
